FAERS Safety Report 21660954 (Version 3)
Quarter: 2023Q1

REPORT INFORMATION
  Report Type: Spontaneous
  Country: CA (occurrence: None)
  Receive Date: 20221130
  Receipt Date: 20230203
  Transmission Date: 20230418
  Serious: Yes (Other)
  Sender: FDA-Public Use
  Company Number: CA-ROCHE-3108108

PATIENT
  Age: 4 Year
  Sex: Female

DRUGS (3)
  1. SOMATROPIN [Suspect]
     Active Substance: SOMATROPIN
     Indication: Growth hormone deficiency
     Dosage: DRUG DOSE FIRST ADMINISTERED IS 300.0 MICROGRAM
     Route: 058
  2. SOMATROPIN [Suspect]
     Active Substance: SOMATROPIN
     Indication: Growth hormone deficiency
     Route: 058
  3. ALVESCO [Concomitant]
     Active Substance: CICLESONIDE
     Dosage: DRUG DOSE FIRST ADMINISTERED IS 1.0 DOSAGE FORMS

REACTIONS (12)
  - Drug ineffective [Unknown]
  - Device issue [Unknown]
  - Wrong technique in device usage process [Unknown]
  - COVID-19 [Recovered/Resolved]
  - Excessive eye blinking [Recovered/Resolved]
  - Hypoglycaemia [Recovered/Resolved]
  - Fatigue [Recovered/Resolved]
  - Headache [Recovered/Resolved]
  - Petit mal epilepsy [Recovered/Resolved]
  - Pyrexia [Recovered/Resolved]
  - Device defective [Unknown]
  - Device occlusion [Unknown]
